FAERS Safety Report 23867403 (Version 6)
Quarter: 2025Q4

REPORT INFORMATION
  Report Type: Report from Study
  Country: US (occurrence: US)
  Receive Date: 20240517
  Receipt Date: 20251214
  Transmission Date: 20260118
  Serious: Yes (Hospitalization, Other)
  Sender: TAKEDA
  Company Number: US-TAKEDA-2024TUS045892

PATIENT
  Age: 41 Year
  Sex: Female
  Weight: 202 kg

DRUGS (12)
  1. VEDOLIZUMAB [Suspect]
     Active Substance: VEDOLIZUMAB
     Indication: Colitis ulcerative
     Dosage: UNK
  2. VEDOLIZUMAB [Suspect]
     Active Substance: VEDOLIZUMAB
     Indication: Irritable bowel syndrome
  3. VEDOLIZUMAB [Suspect]
     Active Substance: VEDOLIZUMAB
     Indication: Colitis ulcerative
     Dosage: 108 MILLIGRAM, Q2WEEKS
     Dates: start: 20240203
  4. VEDOLIZUMAB [Suspect]
     Active Substance: VEDOLIZUMAB
     Indication: Irritable bowel syndrome
     Dosage: 108 MILLIGRAM, Q2WEEKS
  5. VEDOLIZUMAB [Suspect]
     Active Substance: VEDOLIZUMAB
     Dosage: 108 MILLIGRAM, Q2WEEKS
     Dates: start: 20251009
  6. VEDOLIZUMAB [Suspect]
     Active Substance: VEDOLIZUMAB
     Dosage: 108 MILLIGRAM, Q2WEEKS
     Dates: end: 20251116
  7. CYCLOBENZAPRINE HYDROCHLORIDE [Concomitant]
     Active Substance: CYCLOBENZAPRINE HYDROCHLORIDE
     Dosage: UNK
  8. FISH OIL [Concomitant]
     Active Substance: FISH OIL
     Dosage: UNK
  9. IBU [Concomitant]
     Active Substance: IBUPROFEN
     Dosage: UNK
  10. HEMP [Concomitant]
     Active Substance: HEMP
     Dosage: UNK
  11. MESALAMINE [Concomitant]
     Active Substance: MESALAMINE
     Dosage: 1.2 GRAM
  12. CYCLOBENZAPRINE [Concomitant]
     Active Substance: CYCLOBENZAPRINE
     Dosage: 10 MILLIGRAM

REACTIONS (10)
  - Colitis ulcerative [Not Recovered/Not Resolved]
  - Drug ineffective [Not Recovered/Not Resolved]
  - Bladder disorder [Not Recovered/Not Resolved]
  - Stress [Unknown]
  - Impaired quality of life [Unknown]
  - Weight increased [Unknown]
  - Alopecia [Unknown]
  - Urinary tract infection [Not Recovered/Not Resolved]
  - Arthralgia [Not Recovered/Not Resolved]
  - Fatigue [Not Recovered/Not Resolved]
